FAERS Safety Report 13857317 (Version 2)
Quarter: 2019Q3

REPORT INFORMATION
  Report Type: Spontaneous
  Country: US (occurrence: US)
  Receive Date: 20170810
  Receipt Date: 20190708
  Transmission Date: 20191004
  Serious: Yes (Death, Other)
  Sender: FDA-Public Use
  Company Number: US-ZYDUS-016002

PATIENT
  Sex: Male
  Weight: 3.5 kg

DRUGS (1)
  1. MORPHINE/MORPHINE HYDROCHLORIDE/MORPHINE SULFATE/MORPHINE TARTRATE [Suspect]
     Active Substance: MORPHINE\MORPHINE HYDROCHLORIDE\MORPHINE SULFATE\MORPHINE TARTRATE
     Indication: PAIN OF SKIN
     Route: 065

REACTIONS (6)
  - Condition aggravated [Unknown]
  - Multiple organ dysfunction syndrome [Fatal]
  - Newborn persistent pulmonary hypertension [Unknown]
  - Coagulopathy [Unknown]
  - Neonatal respiratory distress [Unknown]
  - Neonatal hypotension [Unknown]
